FAERS Safety Report 9841916 (Version 2)
Quarter: 2014Q1

REPORT INFORMATION
  Report Type: Spontaneous
  Country: US (occurrence: US)
  Receive Date: 20140124
  Receipt Date: 20140218
  Transmission Date: 20141002
  Serious: Yes (Death, Hospitalization)
  Sender: FDA-Public Use
  Company Number: US-LUNDBECK-DKLU1096788

PATIENT
  Sex: Female

DRUGS (1)
  1. SABRIL (FOR ORAL SOLUTION) [Suspect]
     Indication: INFANTILE SPASMS
     Route: 048
     Dates: start: 20100716

REACTIONS (5)
  - Cardiac arrest [Fatal]
  - Shock [Unknown]
  - Pulmonary hypertension [Unknown]
  - Dehydration [Unknown]
  - Rotavirus infection [Unknown]
